FAERS Safety Report 12713431 (Version 2)
Quarter: 2016Q3

REPORT INFORMATION
  Report Type: Spontaneous
  Country: US (occurrence: US)
  Receive Date: 20160903
  Receipt Date: 20160922
  Transmission Date: 20161109
  Serious: No
  Sender: FDA-Public Use
  Company Number: US-ASTRAZENECA-2007UW23888

PATIENT
  Age: 61 Year
  Sex: Female
  Weight: 95.3 kg

DRUGS (8)
  1. ATENOLOL. [Concomitant]
     Active Substance: ATENOLOL
  2. ALBUTEROL RESCUE INHALER [Concomitant]
     Indication: ASTHMA
     Route: 055
  3. SYNTHROID [Concomitant]
     Active Substance: LEVOTHYROXINE SODIUM
  4. ALBUTEROL RESCUE INHALER [Concomitant]
     Indication: ASTHMA
     Dosage: 90 MCG.1 PUFF AS REQUIRED
     Route: 055
     Dates: start: 2006
  5. CLONIDINE. [Concomitant]
     Active Substance: CLONIDINE
  6. PULMICORT FLEXHALER [Suspect]
     Active Substance: BUDESONIDE
     Indication: ASTHMA
     Dosage: 180 MCG. 1 PUFF 2 TIMES DAILY
     Route: 055
     Dates: start: 2008
  7. COZAAR [Concomitant]
     Active Substance: LOSARTAN POTASSIUM
  8. PULMICORT FLEXHALER [Suspect]
     Active Substance: BUDESONIDE
     Indication: ASTHMA
     Route: 055

REACTIONS (7)
  - Underdose [Unknown]
  - Wheezing [Unknown]
  - Drug ineffective [Unknown]
  - Intentional product misuse [Unknown]
  - Device issue [Unknown]
  - Asthma [Unknown]
  - Drug dose omission [Unknown]

NARRATIVE: CASE EVENT DATE: 20071015
